FAERS Safety Report 7369690-8 (Version None)
Quarter: 2011Q1

REPORT INFORMATION
  Report Type: 
  Country: None (occurrence: None)
  Receive Date: 20110323
  Receipt Date: 20101005
  Transmission Date: 20110831
  Serious: Yes (Hospitalization, Other)
  Sender: FDA-Public Use
  Company Number: US-BAYER-201013320NA

PATIENT
  Sex: Female
  Weight: 74 kg

DRUGS (2)
  1. LEVLEN 28 [Suspect]
     Dosage: UNK
     Dates: start: 20070703, end: 20080101
  2. YASMIN [Suspect]
     Indication: HAEMOGLOBIN DECREASED
     Dates: start: 20080101

REACTIONS (7)
  - CHOLECYSTITIS [None]
  - VOMITING [None]
  - BILE DUCT STONE [None]
  - ABDOMINAL PAIN UPPER [None]
  - NAUSEA [None]
  - ABDOMINAL PAIN [None]
  - JAUNDICE CHOLESTATIC [None]
